FAERS Safety Report 16066556 (Version 1)
Quarter: 2019Q2

REPORT INFORMATION
  Report Type: Spontaneous
  Country: US (occurrence: US)
  Receive Date: 20190313
  Receipt Date: 20190313
  Transmission Date: 20190711
  Serious: No
  Sender: FDA-Public Use
  Company Number: None

PATIENT
  Age: 9 Year
  Sex: Male
  Weight: 51.75 kg

DRUGS (2)
  1. OSTELTAMIVIR 75 MG CAPSULES [Suspect]
     Active Substance: OSELTAMIVIR PHOSPHATE
     Indication: INFLUENZA
     Dosage: ?          QUANTITY:1 CAPSULE(S);?
     Route: 048
     Dates: start: 20190312, end: 20190313
  2. ZYRTEC [Concomitant]
     Active Substance: CETIRIZINE HYDROCHLORIDE

REACTIONS (5)
  - Musculoskeletal disorder [None]
  - Crying [None]
  - Tremor [None]
  - Nightmare [None]
  - Eye contusion [None]

NARRATIVE: CASE EVENT DATE: 20190312
